FAERS Safety Report 14027739 (Version 1)
Quarter: 2017Q3

REPORT INFORMATION
  Report Type: Spontaneous
  Country: DE (occurrence: DE)
  Receive Date: 20170929
  Receipt Date: 20170929
  Transmission Date: 20171128
  Serious: Yes (Other)
  Sender: FDA-Public Use
  Company Number: DE-MERCK KGAA-2028164

PATIENT
  Age: 84 Year
  Sex: Male

DRUGS (1)
  1. NOVOTHYROX [Suspect]
     Active Substance: LEVOTHYROXINE SODIUM
     Indication: POST PROCEDURAL HYPOTHYROIDISM
     Dates: start: 201709

REACTIONS (4)
  - Anosmia [None]
  - Mental disorder [None]
  - Intracranial pressure increased [None]
  - Nightmare [None]

NARRATIVE: CASE EVENT DATE: 201709
